FAERS Safety Report 8175477-9 (Version None)
Quarter: 2012Q1

REPORT INFORMATION
  Report Type: 
  Country: None (occurrence: None)
  Receive Date: 20120229
  Receipt Date: 20120221
  Transmission Date: 20120608
  Serious: Yes (Life-Threatening, Hospitalization, Other)
  Sender: FDA-Public Use
  Company Number: US-RB-028126-11

PATIENT
  Age: 42 Year
  Sex: Male

DRUGS (4)
  1. AMBIEN [Suspect]
     Indication: SLEEP DISORDER
     Route: 048
     Dates: end: 20110801
  2. SUBOXONE [Suspect]
     Indication: DRUG DEPENDENCE
     Route: 060
     Dates: start: 20100101
  3. CELEXA [Concomitant]
     Indication: DEPRESSION
     Dates: start: 20000101
  4. SUBOXONE [Suspect]
     Indication: DRUG DEPENDENCE
     Route: 060
     Dates: start: 20080101, end: 20100101

REACTIONS (11)
  - INSOMNIA [None]
  - FAECAL INCONTINENCE [None]
  - EATING DISORDER [None]
  - DRUG WITHDRAWAL SYNDROME [None]
  - PANIC ATTACK [None]
  - TESTICULAR MASS [None]
  - DEPRESSION [None]
  - DRUG INEFFECTIVE [None]
  - URINARY INCONTINENCE [None]
  - SUICIDAL IDEATION [None]
  - SUICIDE ATTEMPT [None]
